FAERS Safety Report 13922357 (Version 3)
Quarter: 2020Q2

REPORT INFORMATION
  Report Type: Spontaneous
  Country: US (occurrence: US)
  Receive Date: 20170830
  Receipt Date: 20200413
  Transmission Date: 20200713
  Serious: Yes (Death, Other)
  Sender: FDA-Public Use
  Company Number: US-009507513-1708USA012840

PATIENT
  Sex: Female
  Weight: 92.52 kg

DRUGS (5)
  1. JANUVIA [Suspect]
     Active Substance: SITAGLIPTIN PHOSPHATE
     Indication: PRODUCT USED FOR UNKNOWN INDICATION
     Dosage: 100 MILLIGRAM, DAILY
     Route: 048
     Dates: start: 20071128, end: 200712
  2. VICTOZA [Suspect]
     Active Substance: LIRAGLUTIDE
     Indication: PRODUCT USED FOR UNKNOWN INDICATION
     Dosage: 18 MG/3ML, QPM
     Route: 065
     Dates: start: 20080211, end: 200811
  3. VICTOZA [Suspect]
     Active Substance: LIRAGLUTIDE
     Dosage: 18 MG /3 ML PEN; 1.2 MG INJECTION EACH NIGHT AT BEDTIME
     Dates: start: 20110513, end: 20110624
  4. VICTOZA [Suspect]
     Active Substance: LIRAGLUTIDE
     Dosage: 18 MG /3 ML INJECTION EACH NIGHT AT BEDTIME
     Dates: start: 20140529, end: 20141021
  5. BYETTA [Suspect]
     Active Substance: EXENATIDE
     Indication: PRODUCT USED FOR UNKNOWN INDICATION
     Dosage: 10 MG/.0.04 ML, BID AT NIGHT
     Route: 065
     Dates: start: 2009, end: 2014

REACTIONS (16)
  - Peritonitis [Unknown]
  - Diverticulum [Unknown]
  - Haemangioma of liver [Unknown]
  - Anxiety [Unknown]
  - Diabetic ketoacidosis [Unknown]
  - Respiratory failure [Unknown]
  - Duodenal ulcer haemorrhage [Unknown]
  - Small intestinal obstruction [Unknown]
  - Splenic infarction [Unknown]
  - Pancreatitis [Unknown]
  - Pancreatic carcinoma [Fatal]
  - Hepatic steatosis [Unknown]
  - Sepsis [Unknown]
  - Jaundice cholestatic [Unknown]
  - Metabolic encephalopathy [Unknown]
  - Duodenitis [Unknown]

NARRATIVE: CASE EVENT DATE: 20160327
